FAERS Safety Report 21244880 (Version 1)
Quarter: 2022Q3

REPORT INFORMATION
  Report Type: Spontaneous
  Country: US (occurrence: None)
  Receive Date: 20220822
  Receipt Date: 20220822
  Transmission Date: 20221026
  Serious: No
  Sender: FDA-Public Use
  Company Number: None

PATIENT
  Age: 67 Year
  Sex: Female

DRUGS (1)
  1. EVEROLIMUS [Suspect]
     Active Substance: EVEROLIMUS
     Dosage: FREQUENCY : DAILY;?
     Route: 048
     Dates: start: 202201

REACTIONS (5)
  - Palpitations [None]
  - Blood cholesterol increased [None]
  - Blood pressure increased [None]
  - Glucose tolerance impaired [None]
  - Rash [None]

NARRATIVE: CASE EVENT DATE: 20220202
